FAERS Safety Report 7648684-9 (Version None)
Quarter: 2011Q3

REPORT INFORMATION
  Report Type: 
  Country: None (occurrence: None)
  Receive Date: 20110801
  Receipt Date: 20110721
  Transmission Date: 20111222
  Serious: Yes (Other)
  Sender: FDA-Public Use
  Company Number: PHHY2011US66275

PATIENT
  Sex: Female

DRUGS (10)
  1. ARTIFICIAL TEARS [Concomitant]
  2. PROVIGIL [Concomitant]
     Indication: FATIGUE
     Dosage: 2 TO 3 TIMES DAILY
  3. FLONASE [Concomitant]
     Dosage: QHS
  4. GABAPENTIN [Concomitant]
     Indication: PAIN IN EXTREMITY
     Dosage: 1 TO 2 CAPS DAILY
     Route: 048
  5. GILENYA [Suspect]
     Indication: MULTIPLE SCLEROSIS
     Dosage: 0.5 MG, DAILY
     Route: 048
     Dates: start: 20110104
  6. DOXYCYCLINE [Concomitant]
     Indication: ACNE
     Dosage: 100 MG, DAILY
     Dates: start: 20090414
  7. OVRAL-28 [Concomitant]
  8. RETIN-A [Concomitant]
  9. ZOLPIDEM [Concomitant]
     Indication: INSOMNIA
     Dosage: 10 MG, QHS
  10. VITAMIN D [Concomitant]
     Dosage: 2000 U/DAY

REACTIONS (6)
  - RASH [None]
  - PYELONEPHRITIS [None]
  - WHITE BLOOD CELL COUNT DECREASED [None]
  - HERPES ZOSTER [None]
  - WEIGHT DECREASED [None]
  - ABDOMINAL PAIN UPPER [None]
